FAERS Safety Report 25584877 (Version 1)
Quarter: 2025Q3

REPORT INFORMATION
  Report Type: Report from Study
  Country: US (occurrence: US)
  Receive Date: 20250721
  Receipt Date: 20250721
  Transmission Date: 20251020
  Serious: No
  Sender: TG THERAPEUTICS
  Company Number: US-TG THERAPEUTICS INC.-TGT005442

PATIENT

DRUGS (2)
  1. UBLITUXIMAB [Suspect]
     Active Substance: UBLITUXIMAB
     Indication: Multiple sclerosis
     Route: 042
     Dates: start: 20231012, end: 20231012
  2. UBLITUXIMAB [Suspect]
     Active Substance: UBLITUXIMAB
     Route: 042
     Dates: start: 20241118, end: 20241118

REACTIONS (15)
  - Anxiety [Unknown]
  - Hypertension [Unknown]
  - Multiple sclerosis relapse [Unknown]
  - Urinary incontinence [Unknown]
  - Anal incontinence [Unknown]
  - Gait disturbance [Unknown]
  - Burning sensation [Unknown]
  - Hyperhidrosis [Unknown]
  - Vomiting [Unknown]
  - Irritability [Unknown]
  - Pain [Unknown]
  - Joint stiffness [Unknown]
  - Decreased appetite [Unknown]
  - Nausea [Unknown]
  - Product dose omission issue [Unknown]

NARRATIVE: CASE EVENT DATE: 20250101
